FAERS Safety Report 11121391 (Version 1)
Quarter: 2015Q2

REPORT INFORMATION
  Report Type: Spontaneous
  Country: GB (occurrence: None)
  Receive Date: 20150515
  Receipt Date: 20150515
  Transmission Date: 20150821
  Serious: Yes (Death, Hospitalization, Other)
  Sender: FDA-Public Use
  Company Number: GB-2014VAL000261

PATIENT
  Age: 40 Year
  Sex: Male
  Weight: 81.1 kg

DRUGS (14)
  1. PARACETAMOL (PARACETAMOL) [Suspect]
     Active Substance: ACETAMINOPHEN
     Indication: ANALGESIC THERAPY
     Route: 048
     Dates: start: 20121112
  2. SERTRALINE [Suspect]
     Active Substance: SERTRALINE HYDROCHLORIDE
     Indication: DEPRESSION
     Route: 048
     Dates: start: 20121210, end: 20140101
  3. ZOPICLONE (ZOPICLONE) [Suspect]
     Active Substance: ZOPICLONE
     Indication: INSOMNIA
     Route: 048
     Dates: start: 20130220
  4. METOPROLOL TARTRATE (METOPROLOL TARTRATE) UNKNOWN [Suspect]
     Active Substance: METOPROLOL TARTRATE
     Indication: HYPERTENSION
     Route: 048
     Dates: start: 20120705
  5. RAMIPRIL (RAMIPRIL) [Suspect]
     Active Substance: RAMIPRIL
     Indication: HYPERTENSION
     Route: 048
     Dates: start: 20140112
  6. LIORESAL [Suspect]
     Active Substance: BACLOFEN
     Indication: CEREBROVASCULAR ACCIDENT
     Route: 037
     Dates: start: 20140117, end: 20140119
  7. AMLODIPINE [Suspect]
     Active Substance: AMLODIPINE BESYLATE
     Indication: HYPERTENSION
  8. CO-DYDRAMOL [Suspect]
     Active Substance: ACETAMINOPHEN\DIHYDROCODEINE
     Indication: ANALGESIC THERAPY
     Route: 048
     Dates: start: 20140109
  9. MIRTAZAPINE (MIRTAZAPINE) [Suspect]
     Active Substance: MIRTAZAPINE
     Indication: PRODUCT USED FOR UNKNOWN INDICATION
     Dates: start: 20140522
  10. SILDENAFIL (SILDENAFIL) [Suspect]
     Active Substance: SILDENAFIL
     Indication: ERECTILE DYSFUNCTION
     Route: 048
     Dates: start: 20130220
  11. VENLAFAXINE [Suspect]
     Active Substance: VENLAFAXINE HYDROCHLORIDE
     Indication: DEPRESSION
     Route: 048
     Dates: start: 20140226
  12. BACLOFEN (BACLOFEN) [Suspect]
     Active Substance: BACLOFEN
     Indication: MUSCLE SPASTICITY
     Route: 048
     Dates: start: 20120801, end: 20140120
  13. IBUPROFEN (IBUPROFEN) [Suspect]
     Active Substance: IBUPROFEN
     Indication: ANALGESIC THERAPY
  14. LIORESAL [Suspect]
     Active Substance: BACLOFEN
     Indication: MUSCLE SPASTICITY
     Route: 037
     Dates: start: 20140117, end: 20140119

REACTIONS (32)
  - Erectile dysfunction [None]
  - Cardiomegaly [None]
  - Wound dehiscence [None]
  - Pain [None]
  - Implant site infection [None]
  - Condition aggravated [None]
  - Alcohol poisoning [None]
  - Self injurious behaviour [None]
  - Onychomycosis [None]
  - Hepatic steatosis [None]
  - Treatment noncompliance [None]
  - Stress [None]
  - Pain in extremity [None]
  - Implant site extravasation [None]
  - Depression [None]
  - Malaise [None]
  - Injury [None]
  - Pulmonary congestion [None]
  - Neutrophil count increased [None]
  - Macrophages increased [None]
  - Insomnia [None]
  - Vomiting [None]
  - Petechiae [None]
  - Purulent discharge [None]
  - Fall [None]
  - Blood ethanol increased [None]
  - Conjunctival hyperaemia [None]
  - Toxicity to various agents [None]
  - Pulmonary oedema [None]
  - Scar [None]
  - Scratch [None]
  - Anxiety [None]

NARRATIVE: CASE EVENT DATE: 201402
